FAERS Safety Report 21116347 (Version 1)
Quarter: 2022Q3

REPORT INFORMATION
  Report Type: Report from Study
  Country: US (occurrence: US)
  Receive Date: 20220721
  Receipt Date: 20220721
  Transmission Date: 20221027
  Serious: Yes (Disabling)
  Sender: FDA-Public Use
  Company Number: US-ABBVIE-22K-163-4476137-00

PATIENT
  Sex: Male
  Weight: 87.168 kg

DRUGS (18)
  1. DUOPA [Suspect]
     Active Substance: CARBIDOPA\LEVODOPA
     Indication: Parkinson^s disease
     Route: 050
     Dates: start: 2018
  2. DUOPA [Suspect]
     Active Substance: CARBIDOPA\LEVODOPA
  3. TROSPIUM [Concomitant]
     Active Substance: TROSPIUM
     Indication: Urinary incontinence
     Dosage: ER
  4. BUPROPION [Concomitant]
     Active Substance: BUPROPION
     Indication: Affective disorder
     Dosage: XL
  5. BUPROPION [Concomitant]
     Active Substance: BUPROPION
     Indication: Agitation
  6. ALPHA LIPOIC ACID [Concomitant]
     Active Substance: .ALPHA.-LIPOIC ACID
     Indication: Hypoaesthesia
  7. FISH OIL [Concomitant]
     Active Substance: FISH OIL
     Indication: Supplementation therapy
  8. QUETIAPINE [Concomitant]
     Active Substance: QUETIAPINE
     Indication: Agitation
  9. VITAMIN D [Concomitant]
     Active Substance: VITAMIN D NOS
     Indication: Supplementation therapy
  10. VITAMIN B COMPLEX [Concomitant]
     Active Substance: CYANOCOBALAMIN\DEXPANTHENOL\NIACINAMIDE\PYRIDOXINE HYDROCHLORIDE\RIBOFLAVIN 5^-PHOSPHATE SODIUM\THIA
     Indication: Supplementation therapy
  11. MUCINEX [Concomitant]
     Active Substance: GUAIFENESIN
     Indication: Secretion discharge
  12. FOCUS FACTOR [Concomitant]
     Indication: Memory impairment
  13. MIRALAX [Concomitant]
     Active Substance: POLYETHYLENE GLYCOL 3350
     Indication: Constipation
  14. DONEPEZIL [Concomitant]
     Active Substance: DONEPEZIL
     Indication: Memory impairment
     Dosage: XL
  15. PFIZER-BIONTECH COVID-19 VACCINE [Concomitant]
     Active Substance: TOZINAMERAN
     Indication: COVID-19 immunisation
     Dosage: FIRST DOSE
     Route: 050
     Dates: start: 20210130, end: 20210130
  16. PFIZER-BIONTECH COVID-19 VACCINE [Concomitant]
     Active Substance: TOZINAMERAN
     Dosage: SECOND DOSE
     Route: 050
     Dates: start: 20210304, end: 20210304
  17. PFIZER-BIONTECH COVID-19 VACCINE [Concomitant]
     Active Substance: TOZINAMERAN
     Dosage: BOOSTER DOSE
     Route: 050
     Dates: start: 20211006, end: 20211006
  18. PFIZER-BIONTECH COVID-19 VACCINE [Concomitant]
     Active Substance: TOZINAMERAN
     Dosage: BOOSTER DOSE
     Route: 050
     Dates: start: 2022, end: 2022

REACTIONS (7)
  - Carpal tunnel syndrome [Recovering/Resolving]
  - Duodenogastric reflux [Unknown]
  - Hypoaesthesia [Recovering/Resolving]
  - Confusional state [Not Recovered/Not Resolved]
  - Drug ineffective [Not Recovered/Not Resolved]
  - Device use error [Recovered/Resolved]
  - Device issue [Not Recovered/Not Resolved]

NARRATIVE: CASE EVENT DATE: 20210101
